FAERS Safety Report 5254531-5 (Version None)
Quarter: 2007Q1

REPORT INFORMATION
  Report Type: 
  Country: None (occurrence: None)
  Receive Date: 20070302
  Receipt Date: 20070228
  Transmission Date: 20070707
  Serious: Yes (Life-Threatening)
  Sender: FDA-Public Use
  Company Number: FR-BRISTOL-MYERS SQUIBB COMPANY-13696778

PATIENT
  Age: 76 Year
  Sex: Female

DRUGS (6)
  1. COAPROVEL TABS 300MG/12.5MG [Suspect]
     Route: 048
     Dates: end: 20070106
  2. GLUCOPHAGE [Suspect]
     Route: 048
     Dates: end: 20070106
  3. AMLODIPINE [Suspect]
     Route: 048
     Dates: end: 20070106
  4. PLAVIX [Suspect]
     Route: 048
     Dates: end: 20070106
  5. TAHOR [Suspect]
     Route: 048
     Dates: end: 20070106
  6. INSULIN GLARGINE [Concomitant]
     Dates: end: 20070106

REACTIONS (2)
  - COMA [None]
  - LACTIC ACIDOSIS [None]
